FAERS Safety Report 25405748 (Version 1)
Quarter: 2025Q2

REPORT INFORMATION
  Report Type: Spontaneous
  Country: GB (occurrence: GB)
  Receive Date: 20250606
  Receipt Date: 20250606
  Transmission Date: 20250717
  Serious: Yes (Other)
  Sender: NOVA LABORATORIES LIMITED
  Company Number: GB-Nova Laboratories Limited-2178125

PATIENT
  Age: 54 Year
  Sex: Female

DRUGS (2)
  1. XROMI [Suspect]
     Active Substance: HYDROXYUREA
     Indication: Product used for unknown indication
  2. RUXOLITINIB PHOSPHATE [Suspect]
     Active Substance: RUXOLITINIB PHOSPHATE

REACTIONS (2)
  - Myeloproliferative neoplasm [Unknown]
  - Laboratory test abnormal [Unknown]
